FAERS Safety Report 5377898-6 (Version None)
Quarter: 2007Q3

REPORT INFORMATION
  Report Type: 
  Country: None (occurrence: None)
  Receive Date: 20070703
  Receipt Date: 20070625
  Transmission Date: 20080115
  Serious: Yes (Hospitalization, Disabling)
  Sender: FDA-Public Use
  Company Number: US-MERCK-0612USA01153

PATIENT
  Sex: Female
  Weight: 85 kg

DRUGS (4)
  1. FOSAMAX [Suspect]
     Indication: OSTEOPOROSIS
     Route: 048
     Dates: start: 20020101, end: 20060713
  2. THEOCHRON [Concomitant]
     Indication: ASTHMA
     Route: 065
     Dates: start: 20031128
  3. HYZAAR [Concomitant]
     Indication: BLOOD PRESSURE
     Route: 048
     Dates: start: 20040607
  4. PRILOSEC [Concomitant]
     Indication: GASTROOESOPHAGEAL REFLUX DISEASE
     Route: 065

REACTIONS (14)
  - ACQUIRED OESOPHAGEAL WEB [None]
  - DENTAL CARIES [None]
  - DYSPEPSIA [None]
  - FLANK PAIN [None]
  - GASTROOESOPHAGEAL REFLUX DISEASE [None]
  - GINGIVAL HYPERPLASIA [None]
  - HAEMATURIA [None]
  - HIATUS HERNIA [None]
  - KIDNEY INFECTION [None]
  - ORAL DISCOMFORT [None]
  - OSTEOARTHRITIS [None]
  - OSTEONECROSIS [None]
  - PYELONEPHRITIS [None]
  - TONGUE DISORDER [None]
